FAERS Safety Report 7859935-X (Version None)
Quarter: 2011Q4

REPORT INFORMATION
  Report Type: 
  Country: None (occurrence: None)
  Receive Date: 20111026
  Receipt Date: 20111026
  Transmission Date: 20120403
  Serious: Yes (Death)
  Sender: FDA-Public Use
  Company Number: None

PATIENT
  Sex: Male
  Weight: 60.3284 kg

DRUGS (1)
  1. ERLOTINIB HYDROCHLORIDE [Suspect]
     Dosage: 100MG DAILY PO
     Route: 048
     Dates: start: 20110524, end: 20110918

REACTIONS (1)
  - DISEASE PROGRESSION [None]
